FAERS Safety Report 10781480 (Version 20)
Quarter: 2016Q2

REPORT INFORMATION
  Report Type: Spontaneous
  Country: US (occurrence: US)
  Receive Date: 20150210
  Receipt Date: 20160406
  Transmission Date: 20160815
  Serious: Yes (Hospitalization, Other)
  Sender: FDA-Public Use
  Company Number: US-GLAXOSMITHKLINE-A1068921A

PATIENT
  Age: 77 Year
  Sex: Female

DRUGS (11)
  1. DILTIAZEM [Concomitant]
     Active Substance: DILTIAZEM
  2. FLOLAN [Suspect]
     Active Substance: EPOPROSTENOL SODIUM
     Dosage: 33 NG/KG/MIN (CONCENTRATION 75,000 NG/ML, PUMP RATE 67 ML/DAY, VIAL STRENGTH 1.5 MG), CO
     Route: 042
  3. COUMADIN [Concomitant]
     Active Substance: WARFARIN SODIUM
  4. RIOCIGUAT [Suspect]
     Active Substance: RIOCIGUAT
     Indication: PRODUCT USED FOR UNKNOWN INDICATION
     Route: 065
  5. FLOLAN [Suspect]
     Active Substance: EPOPROSTENOL SODIUM
     Indication: PULMONARY HYPERTENSION
     Dosage: 33 NG/KG/MINUTE,CO
     Route: 042
  6. FLOLAN [Suspect]
     Active Substance: EPOPROSTENOL SODIUM
     Dosage: 33 NG/KG/MIN (CONCENTRATION 75,000 NG/ML, PUMP RATE 67 ML/DAY, VIAL STRENGTH 1.5 MG), CO
     Route: 042
     Dates: start: 20040914
  7. FLOLAN [Suspect]
     Active Substance: EPOPROSTENOL SODIUM
     Indication: PULMONARY EMBOLISM
     Dosage: DOSE: 36 NG/KG/MINCONCENTRATION: 60000 NG/MLPUMP RATE: 91 ML/DAYVIAL STRENGTH: 1.5 MGDOSE: 36 N[...]
     Route: 042
     Dates: start: 20010916
  8. FLOLAN [Suspect]
     Active Substance: EPOPROSTENOL SODIUM
     Dosage: 33 NG/KG/MIN, CONTINUOUSLY
     Route: 042
     Dates: start: 20040915
  9. FLOLAN [Suspect]
     Active Substance: EPOPROSTENOL SODIUM
     Indication: PULMONARY INFARCTION
     Dosage: UNK
     Dates: start: 20010916
  10. FLOLAN [Suspect]
     Active Substance: EPOPROSTENOL SODIUM
     Indication: COR PULMONALE CHRONIC
     Dosage: 37 NG/KG/MIN CONTINUOUS; CONCENTRATION: 75,000 NG/ML; PUMP RATE: 75 ML/DAY; VIAL STRENGTH: 1.5 MG
     Route: 042
     Dates: start: 20040916
  11. FLOLAN [Suspect]
     Active Substance: EPOPROSTENOL SODIUM
     Indication: PULMONARY HYPERTENSION
     Dosage: 33 NG/KG/MIN (CONCENTRATION 75,000 NG/ML, PUMP RATE 67 ML/DAY, VIAL STRENGTH 1.5 MG), CO
     Route: 042

REACTIONS (24)
  - Cardiac failure congestive [Unknown]
  - Respiration abnormal [Recovered/Resolved]
  - Feeling abnormal [Recovering/Resolving]
  - Hospitalisation [Unknown]
  - Pericardial effusion [Unknown]
  - Headache [Recovering/Resolving]
  - Adverse drug reaction [Recovered/Resolved]
  - Fatigue [Unknown]
  - International normalised ratio fluctuation [Unknown]
  - Nausea [Not Recovered/Not Resolved]
  - Nervousness [Unknown]
  - Complication associated with device [Unknown]
  - Central venous catheterisation [Unknown]
  - Pleural effusion [Unknown]
  - Decreased appetite [Not Recovered/Not Resolved]
  - Atrial fibrillation [Unknown]
  - Vomiting [Not Recovered/Not Resolved]
  - Catheter site extravasation [Unknown]
  - Device leakage [Unknown]
  - Dyspnoea [Unknown]
  - Abdominal pain upper [Unknown]
  - Diarrhoea [Unknown]
  - Tearfulness [Unknown]
  - Accidental exposure to product [Unknown]

NARRATIVE: CASE EVENT DATE: 201504
